FAERS Safety Report 16695181 (Version 4)
Quarter: 2020Q3

REPORT INFORMATION
  Report Type: Other
  Country: US (occurrence: US)
  Receive Date: 20190813
  Receipt Date: 20200922
  Transmission Date: 20201102
  Serious: Yes (Other)
  Sender: FDA-Public Use
  Company Number: US-ROCHE-2371697

PATIENT
  Sex: Female

DRUGS (23)
  1. OMEGA 3 [Concomitant]
     Active Substance: OMEGA-3 FATTY ACIDS
     Dosage: QD
     Dates: start: 20200810
  2. ESTRADIOL. [Concomitant]
     Active Substance: ESTRADIOL
     Dosage: 0.1 MG/GM
     Route: 067
     Dates: start: 20191002
  3. TAMSULOSIN HYDROCHLORIDE. [Concomitant]
     Active Substance: TAMSULOSIN HYDROCHLORIDE
     Dosage: QD
     Route: 048
     Dates: start: 20190928
  4. CYMBALTA [Concomitant]
     Active Substance: DULOXETINE HYDROCHLORIDE
     Dosage: 60 MG OR CPEP
     Dates: start: 20120723
  5. TIZADINE [Concomitant]
     Active Substance: TIZANIDINE HYDROCHLORIDE
     Dosage: 1 BID 90 DAYS
     Route: 048
     Dates: start: 20200408
  6. BACLOFEN. [Concomitant]
     Active Substance: BACLOFEN
     Route: 048
     Dates: start: 20200408
  7. CRANBERRY PLUS [Concomitant]
     Dosage: QD
     Route: 048
     Dates: start: 20180201
  8. VITAMIN C [Concomitant]
     Active Substance: ASCORBIC ACID
     Dosage: QD
     Route: 048
     Dates: start: 20180202
  9. PSYLLIUM FIBRE [Concomitant]
     Active Substance: HERBALS\PLANTAGO OVATA SEED COAT
     Dosage: 2 BID
     Dates: start: 20120208
  10. OCREVUS [Suspect]
     Active Substance: OCRELIZUMAB
     Route: 065
     Dates: start: 20200510
  11. ALLEGRA ALLERGY [Concomitant]
     Active Substance: FEXOFENADINE HYDROCHLORIDE
     Dosage: QAM
     Route: 048
     Dates: start: 20191016
  12. OCREVUS [Suspect]
     Active Substance: OCRELIZUMAB
     Indication: RELAPSING MULTIPLE SCLEROSIS
     Dosage: ONGOING : YES
     Route: 065
     Dates: start: 20170516
  13. OCREVUS [Suspect]
     Active Substance: OCRELIZUMAB
     Dosage: 300 MG/10ML
     Route: 065
     Dates: start: 20200519
  14. VALTREX [Concomitant]
     Active Substance: VALACYCLOVIR HYDROCHLORIDE
     Dosage: QD
     Route: 048
     Dates: start: 20200408
  15. BUPROPION HYDROCHLORIDE EXTENDED RELEASE [Concomitant]
     Active Substance: BUPROPION HYDROCHLORIDE
     Dosage: BUPROPION HCL ER (XL) 150 QD
     Dates: start: 20190927
  16. ASPIRIN. [Concomitant]
     Active Substance: ASPIRIN
     Dosage: ADULT ASPIRIN LOW STRENGHT 81 QD
     Dates: start: 20121015
  17. VIT D [Concomitant]
     Active Substance: VITAMIN D NOS
     Dosage: QD
     Dates: start: 20160419
  18. OCREVUS [Suspect]
     Active Substance: OCRELIZUMAB
     Route: 065
     Dates: start: 20171117
  19. HYDROXYZINE HYDROCHLORIDE. [Concomitant]
     Active Substance: HYDROXYZINE HYDROCHLORIDE
     Dosage: PRN
     Route: 048
     Dates: start: 20180201
  20. VITAMIN B12 [Concomitant]
     Active Substance: CYANOCOBALAMIN
     Dosage: 500 MCG QD
     Dates: start: 20150803
  21. OCREVUS [Suspect]
     Active Substance: OCRELIZUMAB
     Dosage: 600 MG IV Q 6 MONTHS
     Route: 042
  22. AMANTADINE HYDROCHLORIDE. [Concomitant]
     Active Substance: AMANTADINE HYDROCHLORIDE
     Route: 048
     Dates: start: 20191016
  23. OXYBUTYNIN HYDROCHLORIDE [Concomitant]
     Active Substance: OXYBUTYNIN CHLORIDE
     Dosage: QD
     Dates: start: 20191003

REACTIONS (1)
  - Cystitis [Recovered/Resolved]
